FAERS Safety Report 4667585-1 (Version None)
Quarter: 2005Q2

REPORT INFORMATION
  Report Type: 
  Country: None (occurrence: None)
  Receive Date: 20050520
  Receipt Date: 20050224
  Transmission Date: 20051028
  Serious: Yes (Hospitalization, Other)
  Sender: FDA-Public Use
  Company Number: PHEH2005US02477

PATIENT
  Sex: Female
  Weight: 50 kg

DRUGS (3)
  1. AREDIA [Suspect]
     Indication: MULTIPLE MYELOMA
     Dosage: 90 MG, Q MONTH
     Dates: start: 19990701, end: 20020701
  2. TICLID [Concomitant]
  3. PAXIL [Concomitant]

REACTIONS (5)
  - BONE DEBRIDEMENT [None]
  - MANDIBULECTOMY [None]
  - OSTEOMYELITIS [None]
  - OSTEONECROSIS [None]
  - TOOTH EXTRACTION [None]
